FAERS Safety Report 14473155 (Version 1)
Quarter: 2018Q1

REPORT INFORMATION
  Report Type: Spontaneous
  Country: FR (occurrence: FR)
  Receive Date: 20180201
  Receipt Date: 20180201
  Transmission Date: 20180509
  Serious: Yes (Hospitalization)
  Sender: FDA-Public Use
  Company Number: FR-MERCK KGAA-2041194

PATIENT
  Age: 52 Year
  Sex: Female
  Weight: 60 kg

DRUGS (1)
  1. NOVOTHYROX [Suspect]
     Active Substance: LEVOTHYROXINE SODIUM
     Indication: AUTOIMMUNE THYROIDITIS
     Route: 048
     Dates: start: 201705, end: 201710

REACTIONS (8)
  - Vertigo [Recovering/Resolving]
  - Weight increased [Recovering/Resolving]
  - Myalgia [Recovered/Resolved]
  - Fatigue [Recovering/Resolving]
  - Diffuse alopecia [Recovering/Resolving]
  - Blood thyroid stimulating hormone [Recovered/Resolved]
  - Depressive symptom [Recovering/Resolving]
  - Arthralgia [Recovering/Resolving]

NARRATIVE: CASE EVENT DATE: 20170615
